FAERS Safety Report 14918726 (Version 10)
Quarter: 2019Q2

REPORT INFORMATION
  Report Type: Spontaneous
  Country: US (occurrence: US)
  Receive Date: 20180521
  Receipt Date: 20190605
  Transmission Date: 20190711
  Serious: Yes (Hospitalization, Other)
  Sender: FDA-Public Use
  Company Number: US-PFIZER INC-2018205167

PATIENT
  Age: 82 Year
  Sex: Male
  Weight: 63 kg

DRUGS (9)
  1. PRILOSEC [Concomitant]
     Active Substance: OMEPRAZOLE MAGNESIUM
     Dosage: UNK
  2. SUTENT [Suspect]
     Active Substance: SUNITINIB MALATE
     Indication: GASTROINTESTINAL STROMAL TUMOUR
     Dosage: 50 MG, CYCLIC (28 DAYS ON/14 DAYS OFF)
     Dates: start: 20180430, end: 20180527
  3. SUTENT [Suspect]
     Active Substance: SUNITINIB MALATE
     Dosage: 50 MG, CYCLIC  (28 DAYS ON/14 DAYS OFF) (AKE WITH HIS LAST MEAL)
     Dates: start: 20180820
  4. FINASTERIDE. [Concomitant]
     Active Substance: FINASTERIDE
     Dosage: UNK
  5. OMEPRAZOLE. [Concomitant]
     Active Substance: OMEPRAZOLE
     Dosage: UNK
  6. SUTENT [Suspect]
     Active Substance: SUNITINIB MALATE
     Dosage: 50 MG, CYCLIC [2 WEEKS ON / 1 WEEK OFF]
     Dates: start: 20180709
  7. RAMIPRIL. [Concomitant]
     Active Substance: RAMIPRIL
     Dosage: UNK
  8. PROSCAR [Concomitant]
     Active Substance: FINASTERIDE
     Dosage: UNK
  9. SUTENT [Suspect]
     Active Substance: SUNITINIB MALATE
     Dosage: 50 MG, CYCLIC (28 DAYS ON/14 DAYS OFF)
     Dates: start: 20180709

REACTIONS (22)
  - Gastrooesophageal reflux disease [Recovered/Resolved]
  - Dysgeusia [Not Recovered/Not Resolved]
  - Abdominal distension [Not Recovered/Not Resolved]
  - Diarrhoea [Not Recovered/Not Resolved]
  - Faeces discoloured [Unknown]
  - Fatigue [Recovered/Resolved]
  - Constipation [Not Recovered/Not Resolved]
  - Faeces soft [Not Recovered/Not Resolved]
  - Skin exfoliation [Recovered/Resolved]
  - Internal haemorrhage [Recovered/Resolved]
  - Post procedural complication [Recovered/Resolved]
  - Diplopia [Recovered/Resolved]
  - Weight decreased [Recovering/Resolving]
  - Ageusia [Not Recovered/Not Resolved]
  - Dry skin [Recovered/Resolved]
  - Hyperaesthesia [Recovered/Resolved]
  - Bowel movement irregularity [Not Recovered/Not Resolved]
  - Pain in extremity [Recovered/Resolved]
  - Gastrointestinal disorder [Not Recovered/Not Resolved]
  - Somnolence [Recovered/Resolved]
  - Asthenia [Not Recovered/Not Resolved]
  - Vision blurred [Recovered/Resolved]

NARRATIVE: CASE EVENT DATE: 20180608
